FAERS Safety Report 16135315 (Version 1)
Quarter: 2019Q1

REPORT INFORMATION
  Report Type: Spontaneous
  Country: US (occurrence: US)
  Receive Date: 20190329
  Receipt Date: 20190329
  Transmission Date: 20190418
  Serious: No
  Sender: FDA-Public Use
  Company Number: US-SA-2019SA082876

PATIENT
  Sex: Male

DRUGS (9)
  1. AVODART [Concomitant]
     Active Substance: DUTASTERIDE
  2. ASPIRIN [ACETYLSALICYLIC ACID] [Concomitant]
     Active Substance: ASPIRIN
  3. CANASA [Concomitant]
     Active Substance: MESALAMINE
  4. LINZESS [Concomitant]
     Active Substance: LINACLOTIDE
  5. CARBAMAZEPIN [Concomitant]
     Active Substance: CARBAMAZEPINE
  6. LIALDA [Concomitant]
     Active Substance: MESALAMINE
  7. AUBAGIO [Suspect]
     Active Substance: TERIFLUNOMIDE
     Dosage: 1 DF, QD
     Route: 048
  8. DUTASTERIDE. [Concomitant]
     Active Substance: DUTASTERIDE
  9. ROSUVASTATIN CALCIUM. [Concomitant]
     Active Substance: ROSUVASTATIN CALCIUM

REACTIONS (1)
  - Product dose omission [Not Recovered/Not Resolved]
